FAERS Safety Report 7082528 (Version 2)
Quarter: 2012Q4

REPORT INFORMATION
  Report Type: 
  Country: GB (occurrence: GB)
  Receive Date: 20090814
  Receipt Date: 20121217
  Transmission Date: 20130627
  Serious: Yes (Hospitalization, Other)
  Sender: FDA-Public Use
  Company Number: GB-PFIZER INC-2009249997

PATIENT
  Age: 51 Year
  Sex: Male

DRUGS (1)
  1. SULFASALAZINE [Suspect]
     Indication: RHEUMATOID ARTHRITIS

REACTIONS (1)
  - Stevens-Johnson syndrome [Recovered/Resolved]
